FAERS Safety Report 8302591-7 (Version None)
Quarter: 2012Q2

REPORT INFORMATION
  Report Type: 
  Country: None (occurrence: None)
  Receive Date: 20120420
  Receipt Date: 20120410
  Transmission Date: 20120825
  Serious: Yes (Hospitalization, Other)
  Sender: FDA-Public Use
  Company Number: MX-ROCHE-1003361

PATIENT
  Sex: Female
  Weight: 87.5 kg

DRUGS (3)
  1. HERCEPTIN [Suspect]
     Indication: BREAST CANCER
     Route: 042
     Dates: start: 20100923, end: 20111018
  2. XELODA [Suspect]
     Indication: BREAST CANCER METASTATIC
     Route: 048
     Dates: start: 20120213
  3. VINORELBINE TARTRATE [Suspect]
     Indication: BREAST CANCER METASTATIC
     Dosage: DOSE: 5X 20 MG TWICE PER CYCLE (DAY 1 AND DAY 7 OF THERAPY)
     Route: 048
     Dates: start: 20120213

REACTIONS (13)
  - MENORRHAGIA [None]
  - CARDIAC HYPERTROPHY [None]
  - PALMAR-PLANTAR ERYTHRODYSAESTHESIA SYNDROME [None]
  - VOMITING [None]
  - THYROID FUNCTION TEST ABNORMAL [None]
  - METASTASES TO LIVER [None]
  - TACHYCARDIA [None]
  - DRY SKIN [None]
  - SKIN HYPERPIGMENTATION [None]
  - DIZZINESS [None]
  - HEPATIC PAIN [None]
  - HEADACHE [None]
  - OEDEMA PERIPHERAL [None]
